FAERS Safety Report 4986085-2 (Version None)
Quarter: 2006Q2

REPORT INFORMATION
  Report Type: 
  Country: None (occurrence: None)
  Receive Date: 20060428
  Receipt Date: 20060420
  Transmission Date: 20061013
  Serious: Yes (Hospitalization)
  Sender: FDA-Public Use
  Company Number: US-JNJFOC-20060405300

PATIENT

DRUGS (5)
  1. TYLENOL (CAPLET) [Suspect]
     Route: 064
  2. TYLENOL (CAPLET) [Suspect]
     Indication: DRUG USE FOR UNKNOWN INDICATION
     Dosage: INGESTED BY MOTHER AS NEEDED DURING PREGNANCY
     Route: 064
  3. SUDAFED 12 HOUR [Suspect]
     Indication: DRUG USE FOR UNKNOWN INDICATION
     Dosage: MOTHER INGESTED 1-2 CAPLETS DAILY
     Route: 064
  4. METFORMIN [Suspect]
     Indication: DRUG USE FOR UNKNOWN INDICATION
     Dosage: MOTHER INGESTED 500 MG TID
     Route: 064
  5. ROBITUSSIN [Suspect]
     Indication: DRUG USE FOR UNKNOWN INDICATION
     Dosage: MOTHER INGESTED AS NECESSARY
     Route: 064

REACTIONS (2)
  - DRUG EXPOSURE DURING PREGNANCY [None]
  - PREMATURE BABY [None]
